FAERS Safety Report 16001550 (Version 3)
Quarter: 2019Q3

REPORT INFORMATION
  Report Type: Spontaneous
  Country: JP (occurrence: JP)
  Receive Date: 20190225
  Receipt Date: 20190724
  Transmission Date: 20191004
  Serious: Yes (Other)
  Sender: FDA-Public Use
  Company Number: JP-PFIZER INC-2019073973

PATIENT
  Age: 49 Year
  Sex: Female
  Weight: 81 kg

DRUGS (4)
  1. LORBRENA [Suspect]
     Active Substance: LORLATINIB
     Dosage: 100 MG, DAILY, 2 WEEKS ON, 2 WEEKS OFF
     Route: 048
     Dates: start: 20190304, end: 20190318
  2. ALECENSA [Suspect]
     Active Substance: ALECTINIB HYDROCHLORIDE
     Dosage: UNK,ON 2 WEEKS AND OFF ON 2 WEEKS
  3. LORBRENA [Suspect]
     Active Substance: LORLATINIB
     Indication: LUNG NEOPLASM MALIGNANT
     Dosage: 100 MG, DAILY, 2 WEEKS ON, 2 WEEKS OFF
     Route: 048
     Dates: start: 20181203, end: 20190117
  4. LORBRENA [Suspect]
     Active Substance: LORLATINIB
     Dosage: 100 MG, DAILY, 2 WEEKS ON, 2 WEEKS OFF
     Route: 048
     Dates: start: 20190401, end: 20190410

REACTIONS (4)
  - Neoplasm progression [Unknown]
  - Arrhythmia [Recovered/Resolved]
  - Oedema [Recovered/Resolved]
  - Blood cholesterol increased [Unknown]

NARRATIVE: CASE EVENT DATE: 20190121
